FAERS Safety Report 6552150-1 (Version None)
Quarter: 2010Q1

REPORT INFORMATION
  Report Type: 
  Country: None (occurrence: None)
  Receive Date: 20100126
  Receipt Date: 20100121
  Transmission Date: 20100710
  Serious: Yes (Life-Threatening, Hospitalization)
  Sender: FDA-Public Use
  Company Number: GB-ABBOTT-10P-167-0621000-00

PATIENT
  Sex: Male
  Weight: 65 kg

DRUGS (12)
  1. KLARICID [Suspect]
     Indication: PYREXIA
     Dates: start: 20080627, end: 20080629
  2. LITAK [Suspect]
     Indication: HAIRY CELL LEUKAEMIA
     Route: 058
     Dates: start: 20080701, end: 20080705
  3. ACICLOVIR [Suspect]
     Indication: PROPHYLAXIS
     Route: 048
     Dates: start: 20080630, end: 20080709
  4. CO-TRIMOXAZOLE [Suspect]
     Indication: PROPHYLAXIS
     Dates: start: 20080702, end: 20080704
  5. ITRACONAZOLE [Suspect]
     Indication: PROPHYLAXIS
     Dates: start: 20080627, end: 20080706
  6. BENDROFLUMETHIAZIDE [Suspect]
     Indication: HYPERTENSION
     Route: 048
  7. SIMVASTATIN [Suspect]
     Indication: HYPERLIPIDAEMIA
  8. CIPROFLOXACIN [Suspect]
     Indication: INFECTION PROPHYLAXIS
     Dates: start: 20080627, end: 20080706
  9. ALLOPURINOL [Suspect]
     Indication: TUMOUR LYSIS SYNDROME
     Route: 048
  10. ZOPICLONE [Suspect]
     Indication: DRUG USE FOR UNKNOWN INDICATION
     Dates: start: 20080627, end: 20080706
  11. AMPHOTERICIN B [Suspect]
     Indication: DRUG USE FOR UNKNOWN INDICATION
     Dates: start: 20080627, end: 20080706
  12. CEFTAZIDIME [Suspect]
     Indication: PYREXIA
     Dates: start: 20080627, end: 20080629

REACTIONS (20)
  - ACUTE MYOCARDIAL INFARCTION [None]
  - BILE DUCT OBSTRUCTION [None]
  - BRADYARRHYTHMIA [None]
  - DIALYSIS [None]
  - DISSEMINATED INTRAVASCULAR COAGULATION [None]
  - ENTEROCOCCAL INFECTION [None]
  - HAEMODIALYSIS [None]
  - HYPERBILIRUBINAEMIA [None]
  - HYPERSENSITIVITY [None]
  - HYPOTENSION [None]
  - LEUKOCYTOCLASTIC VASCULITIS [None]
  - LIVER DISORDER [None]
  - NEUTROPENIC SEPSIS [None]
  - PYREXIA [None]
  - RENAL IMPAIRMENT [None]
  - SEPTIC SHOCK [None]
  - STAPHYLOCOCCAL INFECTION [None]
  - SWELLING FACE [None]
  - THROMBOCYTOPENIA [None]
  - WEIGHT DECREASED [None]
